FAERS Safety Report 6407158-3 (Version None)
Quarter: 2009Q4

REPORT INFORMATION
  Report Type: 
  Country: None (occurrence: None)
  Receive Date: 20091014
  Receipt Date: 20090929
  Transmission Date: 20100525
  Serious: Yes (Hospitalization)
  Sender: FDA-Public Use
  Company Number: 2009002962

PATIENT
  Sex: Male

DRUGS (10)
  1. ERLOTINIB HYDROCHLORIDE [Suspect]
     Indication: NON-SMALL CELL LUNG CANCER
     Dosage: (QD), ORAL
     Route: 048
     Dates: start: 20090202
  2. ASPIRIN [Concomitant]
  3. BECLAZONE (BECLOMETASONE DIPROPIONATE) [Concomitant]
  4. VENTOLIN [Concomitant]
  5. CITALOPRAM HYDROBROMIDE [Concomitant]
  6. SIMVASTATIN [Concomitant]
  7. DEXAMETHASONE TAB [Concomitant]
  8. IBUPROFEN [Concomitant]
  9. RAMIPRIL [Concomitant]
  10. POTASSIUM CHLORIDE [Concomitant]

REACTIONS (1)
  - MUSCULOSKELETAL CHEST PAIN [None]
